FAERS Safety Report 7296007-X (Version None)
Quarter: 2011Q1

REPORT INFORMATION
  Report Type: 
  Country: None (occurrence: None)
  Receive Date: 20110216
  Receipt Date: 20101202
  Transmission Date: 20110831
  Serious: No
  Sender: FDA-Public Use
  Company Number: US-ABBOTT-10P-163-0689635-00

PATIENT
  Sex: Male
  Weight: 74.91 kg

DRUGS (9)
  1. SIMCOR [Suspect]
     Route: 048
     Dates: start: 20101001, end: 20101129
  2. PLAVIX [Concomitant]
     Indication: VASCULAR GRAFT
     Dates: start: 20061201
  3. VITAMIN B-12 [Concomitant]
     Indication: ANAEMIA
     Dosage: TIME RELEASED, DAILY
     Route: 048
     Dates: start: 20100501
  4. LISINOPRIL [Concomitant]
     Indication: BLOOD PRESSURE INCREASED
  5. DIGOXIN [Concomitant]
     Indication: TACHYCARDIA
     Dosage: 1/2 TAB DAILY
     Route: 048
  6. SIMCOR [Suspect]
     Indication: HIGH DENSITY LIPOPROTEIN DECREASED
     Route: 048
     Dates: start: 20101129
  7. CARVEDILOL [Concomitant]
     Indication: BLOOD PRESSURE INCREASED
     Route: 048
  8. SIMCOR [Suspect]
     Route: 048
     Dates: start: 20090101, end: 20101001
  9. LOVAZA [Concomitant]
     Indication: PRODUCT USED FOR UNKNOWN INDICATION
     Route: 048

REACTIONS (3)
  - RECTAL HAEMORRHAGE [None]
  - FLUSHING [None]
  - TOTAL CHOLESTEROL/HDL RATIO ABNORMAL [None]
